FAERS Safety Report 5576447-7 (Version None)
Quarter: 2007Q4

REPORT INFORMATION
  Report Type: 
  Country: None (occurrence: None)
  Receive Date: 20071228
  Receipt Date: 20071212
  Transmission Date: 20080405
  Serious: Yes (Life-Threatening)
  Sender: FDA-Public Use
  Company Number: JP-ASTRAZENECA-2007AP06086

PATIENT
  Age: 6026 Day
  Sex: Female

DRUGS (7)
  1. SEROQUEL [Suspect]
     Indication: SCHIZOPHRENIA
     Route: 048
     Dates: start: 20070827, end: 20070905
  2. SEROQUEL [Suspect]
     Route: 048
     Dates: start: 20070906, end: 20070911
  3. ZYPREXA [Concomitant]
     Indication: SCHIZOPHRENIA
     Route: 048
     Dates: start: 20070816, end: 20071119
  4. FLUNITRAZEPAM [Concomitant]
     Indication: SCHIZOPHRENIA
     Route: 048
     Dates: start: 20070730
  5. DOGMATYL [Concomitant]
     Indication: SCHIZOPHRENIA
     Route: 048
     Dates: start: 20070227, end: 20070320
  6. SERENACE [Concomitant]
     Indication: SCHIZOPHRENIA
     Route: 048
     Dates: start: 20070320, end: 20070417
  7. SERENACE [Concomitant]
     Route: 048
     Dates: start: 20070418, end: 20070815

REACTIONS (2)
  - HEPATIC FUNCTION ABNORMAL [None]
  - STEVENS-JOHNSON SYNDROME [None]
